FAERS Safety Report 5695457-2 (Version None)
Quarter: 2008Q2

REPORT INFORMATION
  Report Type: 
  Country: None (occurrence: None)
  Receive Date: 20080403
  Receipt Date: 20080320
  Transmission Date: 20081010
  Serious: Yes (Other)
  Sender: FDA-Public Use
  Company Number: 08-000480

PATIENT
  Age: 21 Year
  Sex: Female
  Weight: 45.4 kg

DRUGS (2)
  1. LOESTRIN 24 FE [Suspect]
     Indication: CONTRACEPTION
     Dosage: 20/1000UG, QD, ORAL
     Route: 048
     Dates: start: 20071101
  2. LOESTRIN 24 FE [Suspect]
     Indication: MENSTRUAL CYCLE MANAGEMENT
     Dosage: 20/1000UG, QD, ORAL
     Route: 048
     Dates: start: 20071101

REACTIONS (8)
  - BLINDNESS TRANSIENT [None]
  - DIZZINESS [None]
  - DRUG DOSE OMISSION [None]
  - HEAD DISCOMFORT [None]
  - HYPOAESTHESIA [None]
  - PARAESTHESIA [None]
  - PARALYSIS [None]
  - SENSORY DISTURBANCE [None]
